FAERS Safety Report 5263655-8 (Version None)
Quarter: 2007Q1

REPORT INFORMATION
  Report Type: 
  Country: None (occurrence: None)
  Receive Date: 20070312
  Receipt Date: 20070312
  Transmission Date: 20070707
  Serious: No
  Sender: FDA-Public Use
  Company Number: None

PATIENT
  Age: 41 Year
  Sex: Male

DRUGS (1)
  1. ZYPREXA [Suspect]
     Dosage: TWO 15 MG PER DAY

REACTIONS (5)
  - HAEMORRHAGE [None]
  - MEDICATION ERROR [None]
  - PURULENT DISCHARGE [None]
  - SKIN ULCER [None]
  - SWELLING [None]
